FAERS Safety Report 8214144-X (Version None)
Quarter: 2012Q1

REPORT INFORMATION
  Report Type: 
  Country: None (occurrence: None)
  Receive Date: 20120316
  Receipt Date: 20120308
  Transmission Date: 20120608
  Serious: Yes (Hospitalization, Other)
  Sender: FDA-Public Use
  Company Number: US-BAYER-201014473NA

PATIENT
  Age: 29 Year
  Sex: Female
  Weight: 58 kg

DRUGS (17)
  1. ASTELIN [Concomitant]
  2. SINGULAIR [Concomitant]
     Indication: ASTHMA
     Dosage: UNK
     Dates: start: 20050101, end: 20080101
  3. IMITREX [Concomitant]
     Dates: start: 20050301, end: 20060115
  4. VITAMIN TAB [Concomitant]
     Indication: PRODUCT USED FOR UNKNOWN INDICATION
  5. CELEBREX [Concomitant]
     Indication: PRODUCT USED FOR UNKNOWN INDICATION
  6. YASMIN [Suspect]
     Indication: ACNE
  7. FISH OIL [Concomitant]
     Dates: start: 20071001, end: 20080415
  8. RELPAX [Concomitant]
     Dates: start: 20060201
  9. TRAMADOL HYDROCHLORIDE [Concomitant]
  10. TRAMADOL HCL CF [Concomitant]
  11. TRAMADOL HCL CF [Concomitant]
  12. MELOXICAM [Concomitant]
     Dosage: 7.5 MG, UNK
     Dates: start: 20071111
  13. YASMIN [Suspect]
     Indication: ORAL CONTRACEPTION
     Dosage: AS USED DOSE: UNK
     Route: 048
     Dates: start: 20020801, end: 20080215
  14. VERAPAMIL HYDROCHLORIDE [Concomitant]
     Dates: start: 20050501
  15. NAPROXEN [Concomitant]
     Dates: start: 20040401, end: 20041215
  16. ALBUTEROL [Concomitant]
     Indication: ASTHMA
     Dosage: UNK
     Dates: start: 20050101, end: 20080101
  17. AMOXICILLIN [Concomitant]
     Dosage: 875 MG, UNK
     Dates: start: 20080119

REACTIONS (8)
  - DYSPNOEA [None]
  - SYNCOPE [None]
  - DEEP VEIN THROMBOSIS [None]
  - PULMONARY EMBOLISM [None]
  - OEDEMA PERIPHERAL [None]
  - HEART RATE IRREGULAR [None]
  - PAIN IN EXTREMITY [None]
  - ATELECTASIS [None]
